FAERS Safety Report 8984361 (Version 2)
Quarter: 2013Q1

REPORT INFORMATION
  Report Type: Spontaneous
  Country: US (occurrence: US)
  Receive Date: 20121226
  Receipt Date: 20130120
  Transmission Date: 20140127
  Serious: No
  Sender: FDA-Public Use
  Company Number: US-009507513-1212USA008577

PATIENT
  Age: 65 Year
  Sex: Female

DRUGS (2)
  1. ASMANEX TWISTHALER [Suspect]
     Indication: ASTHMA
     Dosage: 1 PUFF, QD
     Route: 048
     Dates: start: 20121217
  2. ANTIMICROBIAL (UNSPECIFIED) [Concomitant]
     Route: 042

REACTIONS (2)
  - Nervousness [Recovered/Resolved]
  - Hypersensitivity [Recovered/Resolved]
